FAERS Safety Report 19261804 (Version 1)
Quarter: 2021Q2

REPORT INFORMATION
  Report Type: Spontaneous
  Country: BR (occurrence: BR)
  Receive Date: 20210515
  Receipt Date: 20210515
  Transmission Date: 20210717
  Serious: Yes (Other)
  Sender: FDA-Public Use
  Company Number: NVSC2021BR107632

PATIENT
  Sex: Female

DRUGS (2)
  1. TRAVATAN [Suspect]
     Active Substance: TRAVOPROST
     Indication: PRODUCT USED FOR UNKNOWN INDICATION
     Dosage: UNK, TWO YEARS AGO, 4MG/ 5 ML
     Route: 065
  2. SIMBRINZA [Suspect]
     Active Substance: BRIMONIDINE TARTRATE\BRINZOLAMIDE
     Indication: PRODUCT USED FOR UNKNOWN INDICATION
     Dosage: UNK, TWO YEARS AGO, 10MG/10ML
     Route: 065

REACTIONS (7)
  - Eye allergy [Recovered/Resolved]
  - Eye swelling [Recovered/Resolved]
  - Eye pruritus [Unknown]
  - Product substitution issue [Recovered/Resolved]
  - Ocular hyperaemia [Unknown]
  - Glaucoma [Unknown]
  - Reaction to preservatives [Recovered/Resolved]

NARRATIVE: CASE EVENT DATE: 2019
